FAERS Safety Report 10199560 (Version 5)
Quarter: 2020Q1

REPORT INFORMATION
  Report Type: Report from Study
  Country: US (occurrence: US)
  Receive Date: 20140527
  Receipt Date: 20200302
  Transmission Date: 20200409
  Serious: Yes (Disabling, Other)
  Sender: FDA-Public Use
  Company Number: US-SA-2014SA000202

PATIENT
  Age: 60 Year
  Sex: Female

DRUGS (3)
  1. TERIFLUNOMIDE. [Suspect]
     Active Substance: TERIFLUNOMIDE
     Indication: RELAPSING MULTIPLE SCLEROSIS
     Dosage: 7 MG,QD
     Route: 048
     Dates: start: 20131202, end: 20131230
  2. TERIFLUNOMIDE. [Suspect]
     Active Substance: TERIFLUNOMIDE
     Dosage: 14 MG,QD
     Route: 048
     Dates: start: 20131231
  3. DILTIAZEM. [Concomitant]
     Active Substance: DILTIAZEM
     Indication: BLOOD PRESSURE ABNORMAL

REACTIONS (7)
  - Hair texture abnormal [Unknown]
  - Condition aggravated [Unknown]
  - Gait inability [Unknown]
  - Memory impairment [Unknown]
  - Product dose omission [Unknown]
  - Drug hypersensitivity [Unknown]
  - Alopecia [Unknown]

NARRATIVE: CASE EVENT DATE: 2014
